FAERS Safety Report 8860612 (Version 1)
Quarter: 2012Q4

REPORT INFORMATION
  Report Type: 
  Country: US (occurrence: US)
  Receive Date: 20121025
  Receipt Date: 20121025
  Transmission Date: 20130627
  Serious: Yes (Other)
  Sender: FDA-Public Use
  Company Number: US-ASTRAZENECA-2012SE80045

PATIENT
  Age: 70 Year
  Sex: Female

DRUGS (3)
  1. SYMBICORT PMDI [Suspect]
     Route: 055
  2. CRESTOR [Suspect]
     Route: 048
  3. PROVENTIL [Concomitant]

REACTIONS (2)
  - Fall [Unknown]
  - Wrist fracture [Unknown]
